FAERS Safety Report 21652735 (Version 2)
Quarter: 2022Q4

REPORT INFORMATION
  Report Type: Spontaneous
  Country: FR (occurrence: FR)
  Receive Date: 20221128
  Receipt Date: 20221130
  Transmission Date: 20230113
  Serious: Yes (Death, Other)
  Sender: FDA-Public Use
  Company Number: FR-GW PHARMA-2022-FR-036501

PATIENT

DRUGS (8)
  1. CANNABIDIOL [Suspect]
     Active Substance: CANNABIDIOL
     Indication: Lennox-Gastaut syndrome
     Dosage: 5 MG/KG
     Dates: start: 20211118, end: 20220119
  2. CANNABIDIOL [Suspect]
     Active Substance: CANNABIDIOL
     Dosage: 7.5 MG/KG
     Dates: start: 20220120, end: 20220220
  3. CANNABIDIOL [Suspect]
     Active Substance: CANNABIDIOL
     Dosage: 10 MG/KG
     Dates: start: 20220220, end: 20220311
  4. VALPROATE SODIUM [Concomitant]
     Active Substance: VALPROATE SODIUM
     Indication: Lennox-Gastaut syndrome
     Dosage: 600 MILLIGRAM PER DAY
  5. INOVELON [Concomitant]
     Active Substance: RUFINAMIDE
     Indication: Lennox-Gastaut syndrome
     Dosage: 16 MILLILITER/DAY
  6. LAMICTAL [Concomitant]
     Active Substance: LAMOTRIGINE
     Indication: Lennox-Gastaut syndrome
     Dosage: 200 MILLIGRAM/DAY
  7. RIVOTRIL [Concomitant]
     Active Substance: CLONAZEPAM
     Indication: Lennox-Gastaut syndrome
     Dosage: 7 DROPS AT THE EVENING
  8. MIDAZOLAM HYDROCHLORIDE [Concomitant]
     Active Substance: MIDAZOLAM HYDROCHLORIDE
     Indication: Lennox-Gastaut syndrome
     Dosage: EVERY WEEK

REACTIONS (4)
  - Death [Fatal]
  - Epilepsy [Unknown]
  - Drug ineffective [Unknown]
  - Off label use [Unknown]

NARRATIVE: CASE EVENT DATE: 20220311
